FAERS Safety Report 9294335 (Version 2)
Quarter: 2013Q3

REPORT INFORMATION
  Report Type: Report from Study
  Country: KR (occurrence: KR)
  Receive Date: 20130516
  Receipt Date: 20130711
  Transmission Date: 20140515
  Serious: Yes (Hospitalization)
  Sender: FDA-Public Use
  Company Number: 201305408

PATIENT
  Age: 66 Year
  Sex: Female
  Weight: 58 kg

DRUGS (9)
  1. SM-13496 [Suspect]
     Indication: SCHIZOPHRENIA
     Route: 048
     Dates: start: 20130404, end: 20130410
  2. SM-13496 [Suspect]
     Indication: SCHIZOPHRENIA
     Route: 048
     Dates: start: 20130411, end: 20130522
  3. SM-13496 [Suspect]
     Indication: SCHIZOPHRENIA
     Route: 048
     Dates: start: 20130523, end: 20130529
  4. GRANDPHEROL 100IU/C [Concomitant]
     Indication: ADJUVANT THERAPY
     Route: 048
     Dates: start: 20130328
  5. ARONAMIN-C PLUS [Concomitant]
     Indication: ADJUVANT THERAPY
     Route: 048
     Dates: start: 20130328
  6. ZOLPIDEM TARTRATE [Concomitant]
     Indication: INSOMNIA
     Route: 048
     Dates: start: 20130402
  7. POTASSIUM CHLORIDE [Concomitant]
     Indication: HYPOKALAEMIA
     Route: 048
     Dates: start: 20130501, end: 20130505
  8. ACETAMINOPHEN [Concomitant]
     Indication: HEADACHE
     Dosage: PRN
     Route: 048
     Dates: start: 20130321, end: 20130507
  9. PROPRANOLOL [Concomitant]
     Indication: AKATHISIA
     Route: 048
     Dates: start: 20130506

REACTIONS (2)
  - Gastritis erosive [Recovered/Resolved]
  - Gastrooesophageal reflux disease [Recovered/Resolved]
